FAERS Safety Report 11618555 (Version 1)
Quarter: 2015Q4

REPORT INFORMATION
  Report Type: Spontaneous
  Country: US (occurrence: US)
  Receive Date: 20151012
  Receipt Date: 20151012
  Transmission Date: 20160304
  Serious: Yes (Other)
  Sender: FDA-Public Use
  Company Number: US-TEVA-589795USA

PATIENT
  Sex: Female
  Weight: 56.75 kg

DRUGS (1)
  1. SPRINTEC [Suspect]
     Active Substance: ETHINYL ESTRADIOL\NORGESTIMATE
     Indication: PREMENSTRUAL SYNDROME
     Dosage: 0.250MG/0.035MG
     Dates: start: 20150701

REACTIONS (3)
  - Diplopia [Unknown]
  - Vision blurred [Unknown]
  - Papilloedema [Unknown]
